FAERS Safety Report 14980780 (Version 1)
Quarter: 2018Q2

REPORT INFORMATION
  Report Type: Spontaneous
  Country: GB (occurrence: GB)
  Receive Date: 20180606
  Receipt Date: 20180606
  Transmission Date: 20180711
  Serious: Yes (Other)
  Sender: FDA-Public Use
  Company Number: GB-MYLANLABS-2018M1037251

PATIENT
  Age: 38 Month

DRUGS (7)
  1. TOPOTECAN [Suspect]
     Active Substance: TOPOTECAN HYDROCHLORIDE
     Indication: RETINOBLASTOMA
     Dosage: 1 MG, CYCLIC (1, 2, 3)
     Route: 013
  2. MELPHALAN. [Suspect]
     Active Substance: MELPHALAN
     Indication: RETINOBLASTOMA
     Dosage: 5 MG, CYCLIC (3)
     Route: 013
  3. VINCRISTINE [Suspect]
     Active Substance: VINCRISTINE
     Indication: RETINOBLASTOMA
     Dosage: UNK, CYCLE (6)
     Route: 065
  4. MELPHALAN. [Suspect]
     Active Substance: MELPHALAN
     Dosage: 5 MG, CYCLE (3)
     Route: 013
  5. MELPHALAN. [Suspect]
     Active Substance: MELPHALAN
     Dosage: 5 MG, CYCLIC (3)
     Route: 013
  6. CARBOPLATIN. [Suspect]
     Active Substance: CARBOPLATIN
     Indication: RETINOBLASTOMA
     Dosage: UNK UNK, CYCLE (6)
     Route: 065
  7. ETOPOSIDE. [Suspect]
     Active Substance: ETOPOSIDE
     Indication: RETINOBLASTOMA
     Dosage: UNK, CYCLE (6)
     Route: 065

REACTIONS (5)
  - Autonomic nervous system imbalance [Unknown]
  - VIth nerve paralysis [Unknown]
  - Drug ineffective [Unknown]
  - Retinal ischaemia [Unknown]
  - Administration related reaction [Unknown]
